FAERS Safety Report 5865727-3 (Version None)
Quarter: 2008Q3

REPORT INFORMATION
  Report Type: 
  Country: None (occurrence: None)
  Receive Date: 20080829
  Receipt Date: 20080821
  Transmission Date: 20090109
  Serious: Yes (Other)
  Sender: FDA-Public Use
  Company Number: PHEH2008US02875

PATIENT
  Sex: Female
  Weight: 63.8 kg

DRUGS (9)
  1. GLEEVEC [Suspect]
     Indication: MYELODYSPLASTIC SYNDROME
     Dosage: 400 MG, QD
     Route: 048
     Dates: start: 20071001, end: 20071105
  2. GLEEVEC [Suspect]
     Dosage: UNK, NO TREATMENT
     Dates: start: 20071105, end: 20071127
  3. GLEEVEC [Suspect]
     Dosage: 200 MG, UNK
     Route: 048
     Dates: start: 20071127, end: 20071220
  4. COUMADIN [Concomitant]
  5. EXJADE [Concomitant]
     Indication: CHELATION THERAPY
     Dosage: 1500 MG, QD
     Route: 048
     Dates: start: 20060301, end: 20060301
  6. GEMFIBROZIL [Concomitant]
     Indication: LIPIDS
     Dosage: 600 MG, BID
     Route: 048
  7. NORVASC [Concomitant]
     Indication: HYPERTENSION
     Dosage: 5 MG, QD
     Route: 048
  8. SYNTHROID [Concomitant]
  9. RESTORIL [Concomitant]

REACTIONS (6)
  - COUGH [None]
  - HYPOXIA [None]
  - LUNG INFILTRATION [None]
  - PNEUMONIA [None]
  - PULMONARY CONGESTION [None]
  - RASH [None]
